FAERS Safety Report 5336908-2 (Version None)
Quarter: 2007Q2

REPORT INFORMATION
  Report Type: 
  Country: None (occurrence: None)
  Receive Date: 20070524
  Receipt Date: 20070524
  Transmission Date: 20071010
  Serious: Yes (Hospitalization)
  Sender: FDA-Public Use
  Company Number: None

PATIENT
  Sex: Female
  Weight: 51.2 kg

DRUGS (2)
  1. ETOPOSIDE [Suspect]
     Dosage: 3000 MG
     Dates: start: 20070502, end: 20070505
  2. LEUKINE [Suspect]
     Dosage: 5250 MCG

REACTIONS (6)
  - ABDOMINAL PAIN UPPER [None]
  - BILIRUBIN CONJUGATED INCREASED [None]
  - BLOOD BILIRUBIN INCREASED [None]
  - PALMAR-PLANTAR ERYTHRODYSAESTHESIA SYNDROME [None]
  - VENOUS OCCLUSION [None]
  - WEIGHT INCREASED [None]
